FAERS Safety Report 15785697 (Version 1)
Quarter: 2019Q1

REPORT INFORMATION
  Report Type: Spontaneous
  Country: CN (occurrence: CN)
  Receive Date: 20190103
  Receipt Date: 20190103
  Transmission Date: 20190417
  Serious: Yes (Hospitalization)
  Sender: FDA-Public Use
  Company Number: CN-ELI_LILLY_AND_COMPANY-CN201901000489

PATIENT
  Age: 75 Year
  Sex: Male
  Weight: 77 kg

DRUGS (4)
  1. INSULIN HUMAN [Suspect]
     Active Substance: INSULIN HUMAN
     Indication: TYPE 2 DIABETES MELLITUS
     Dosage: UNK UNK, UNKNOWN
     Route: 058
     Dates: start: 200812
  2. INSULIN [Concomitant]
     Active Substance: INSULIN NOS
     Indication: TYPE 2 DIABETES MELLITUS
     Dosage: 34 U, EACH MORNING
     Route: 058
     Dates: start: 201012, end: 20181010
  3. INSULIN [Concomitant]
     Active Substance: INSULIN NOS
     Dosage: 24 U, DAILY AT NIGHT
     Route: 058
     Dates: start: 201012, end: 20181010
  4. GLUCOPHAGE [Concomitant]
     Active Substance: METFORMIN HYDROCHLORIDE
     Indication: TYPE 2 DIABETES MELLITUS
     Dosage: 1 DF, UNKNOWN
     Route: 048

REACTIONS (1)
  - Blood glucose increased [Unknown]
